FAERS Safety Report 6525511-4 (Version None)
Quarter: 2010Q1

REPORT INFORMATION
  Report Type: 
  Country: None (occurrence: None)
  Receive Date: 20100104
  Receipt Date: 20091221
  Transmission Date: 20100710
  Serious: Yes (Death)
  Sender: FDA-Public Use
  Company Number: GB-PFIZER INC-2009312904

PATIENT
  Age: 37 Year
  Sex: Female

DRUGS (3)
  1. SOMATROPIN [Suspect]
     Indication: HYPOPITUITARISM
     Dosage: UNK
  2. DESMOPRESSIN [Concomitant]
     Dosage: 10 UG, 2X/DAY
     Route: 048
  3. RAMIPRIL [Concomitant]
     Dosage: 5 MG, UNK

REACTIONS (1)
  - DEATH [None]
